FAERS Safety Report 6431797-7 (Version None)
Quarter: 2009Q4

REPORT INFORMATION
  Report Type: 
  Country: None (occurrence: None)
  Receive Date: 20091104
  Receipt Date: 20091022
  Transmission Date: 20100525
  Serious: Yes (Life-Threatening)
  Sender: FDA-Public Use
  Company Number: 2009SP002838

PATIENT
  Age: 61 Year
  Sex: Female

DRUGS (3)
  1. ALVESCO [Suspect]
     Indication: ASTHMA
     Dosage: 200 UG; BID; INHALATION
     Route: 055
  2. CON MEDS [Concomitant]
  3. PREV MEDS [Concomitant]

REACTIONS (2)
  - FOREIGN BODY [None]
  - WRONG TECHNIQUE IN DRUG USAGE PROCESS [None]
